FAERS Safety Report 7260413-X (Version None)
Quarter: 2011Q1

REPORT INFORMATION
  Report Type: 
  Country: None (occurrence: None)
  Receive Date: 20110130
  Receipt Date: 20101020
  Transmission Date: 20110831
  Serious: No
  Sender: FDA-Public Use
  Company Number: US-ABBOTT-10P-163-0679819-00

PATIENT
  Age: 64 Year
  Sex: Female

DRUGS (12)
  1. NORVASC [Concomitant]
     Indication: PRODUCT USED FOR UNKNOWN INDICATION
  2. HUMIRA [Suspect]
     Indication: RHEUMATOID ARTHRITIS
     Dates: start: 20101020
  3. FOSAMAX [Concomitant]
     Indication: PRODUCT USED FOR UNKNOWN INDICATION
  4. VAGIFEM [Concomitant]
     Indication: VULVOVAGINAL DRYNESS
  5. PREDNISONE [Concomitant]
     Indication: PRODUCT USED FOR UNKNOWN INDICATION
     Dosage: 5-10 MG
  6. XANAX [Concomitant]
     Indication: ANXIETY
  7. TRAZODONE HCL [Concomitant]
     Indication: PAIN
  8. METHOTREXATE [Concomitant]
     Indication: PRODUCT USED FOR UNKNOWN INDICATION
  9. SITALOPRAM [Concomitant]
     Indication: DEPRESSION
  10. TRAZODONE HCL [Concomitant]
     Indication: INSOMNIA
  11. MONOPRIL [Concomitant]
     Indication: PRODUCT USED FOR UNKNOWN INDICATION
  12. VOLCATREN GEL [Concomitant]
     Indication: ARTHRALGIA

REACTIONS (3)
  - INJECTION SITE HAEMORRHAGE [None]
  - INJECTION SITE EXTRAVASATION [None]
  - INJECTION SITE PAIN [None]
